FAERS Safety Report 10486393 (Version 2)
Quarter: 2014Q4

REPORT INFORMATION
  Report Type: Report from Study
  Country: NL (occurrence: NL)
  Receive Date: 20141001
  Receipt Date: 20141024
  Transmission Date: 20150528
  Serious: Yes (Hospitalization)
  Sender: FDA-Public Use
  Company Number: NL-CELGENE-114-21660-14093250

PATIENT
  Age: 63 Year
  Sex: Female
  Weight: 74 kg

DRUGS (4)
  1. GEMCITABINE [Suspect]
     Active Substance: GEMCITABINE\GEMCITABINE HYDROCHLORIDE
     Indication: PANCREATIC CARCINOMA
     Route: 041
     Dates: start: 20140630
  2. ABRAXANE [Suspect]
     Active Substance: PACLITAXEL
     Indication: PANCREATIC CARCINOMA
     Dosage: 240 MILLIGRAM
     Route: 041
     Dates: start: 20140630
  3. LDE225 [Suspect]
     Active Substance: ERISMODEGIB
     Route: 048
     Dates: start: 20140916
  4. LDE225 [Suspect]
     Active Substance: ERISMODEGIB
     Indication: PANCREATIC CARCINOMA
     Route: 048
     Dates: start: 20140630, end: 20140911

REACTIONS (1)
  - Febrile neutropenia [Recovered/Resolved]

NARRATIVE: CASE EVENT DATE: 20140909
